FAERS Safety Report 19330513 (Version 1)
Quarter: 2021Q2

REPORT INFORMATION
  Report Type: Spontaneous
  Country: US (occurrence: US)
  Receive Date: 20210528
  Receipt Date: 20210528
  Transmission Date: 20210717
  Serious: Yes (Hospitalization, Other)
  Sender: FDA-Public Use
  Company Number: US-ELI_LILLY_AND_COMPANY-US202105007809

PATIENT
  Sex: Male

DRUGS (4)
  1. HUMALOG [Concomitant]
     Active Substance: INSULIN LISPRO
     Indication: DIABETES MELLITUS
  2. HUMULIN 70/30 [Suspect]
     Active Substance: INSULIN HUMAN
     Dosage: UNK UNK, UNKNOWN
     Route: 065
  3. HYDROCODONE [Suspect]
     Active Substance: HYDROCODONE
     Indication: PAIN
     Dosage: UNK, UNKNOWN
     Route: 065
  4. OXYCONTIN [Suspect]
     Active Substance: OXYCODONE HYDROCHLORIDE
     Indication: PAIN
     Dosage: UNK, UNKNOWN
     Route: 065

REACTIONS (6)
  - Feeling drunk [Unknown]
  - Stress [Unknown]
  - Suicidal behaviour [Unknown]
  - Back injury [Unknown]
  - Expired product administered [Unknown]
  - Dizziness [Unknown]
